FAERS Safety Report 8440899-5 (Version None)
Quarter: 2012Q2

REPORT INFORMATION
  Report Type: 
  Country: None (occurrence: None)
  Receive Date: 20120615
  Receipt Date: 20120613
  Transmission Date: 20120825
  Serious: Yes (Death)
  Sender: FDA-Public Use
  Company Number: US-B.I. PHARMACEUTICALS,INC./RIDGEFIELD-2012-BP-13275BP

PATIENT
  Age: 85 Year
  Sex: Male

DRUGS (7)
  1. ATENOLOL [Concomitant]
     Indication: HYPERTENSION
  2. PLAQUENIL [Concomitant]
     Indication: RHEUMATOID ARTHRITIS
  3. FINASTERIDE [Concomitant]
     Indication: BENIGN PROSTATIC HYPERPLASIA
  4. NIACIN [Concomitant]
     Indication: BLOOD CHOLESTEROL INCREASED
  5. PRADAXA [Suspect]
     Indication: ATRIAL FIBRILLATION
     Dosage: 300 MG
     Route: 048
  6. LISINOPRIL [Concomitant]
     Indication: HYPERTENSION
  7. ATENOLOL [Concomitant]
     Indication: ATRIAL FIBRILLATION

REACTIONS (1)
  - HAEMORRHAGIC STROKE [None]
